FAERS Safety Report 12698602 (Version 2)
Quarter: 2016Q3

REPORT INFORMATION
  Report Type: Report from Study
  Country: US (occurrence: US)
  Receive Date: 20160830
  Receipt Date: 20160908
  Transmission Date: 20161109
  Serious: Yes (Other)
  Sender: FDA-Public Use
  Company Number: US-ALEXION PHARMACEUTICALS INC-A201606298

PATIENT
  Age: 53 Year
  Sex: Male

DRUGS (2)
  1. SOLIRIS [Suspect]
     Active Substance: ECULIZUMAB
     Indication: HAEMOLYTIC URAEMIC SYNDROME
     Dosage: UNK
     Route: 042
  2. SOLIRIS [Suspect]
     Active Substance: ECULIZUMAB
     Dosage: 1200 MG, Q2W
     Route: 042

REACTIONS (13)
  - Headache [Unknown]
  - Fatigue [Not Recovered/Not Resolved]
  - Urinary retention [Unknown]
  - Polyp [Unknown]
  - Dehydration [Unknown]
  - Constipation [Unknown]
  - Malaise [Unknown]
  - Dysphagia [Unknown]
  - Decreased appetite [Unknown]
  - Dysphonia [Unknown]
  - Abdominal discomfort [Unknown]
  - Weight decreased [Recovering/Resolving]
  - Choking [Recovered/Resolved]

NARRATIVE: CASE EVENT DATE: 201608
